FAERS Safety Report 4365494-9 (Version None)
Quarter: 2004Q2

REPORT INFORMATION
  Report Type: 
  Country: None (occurrence: None)
  Receive Date: 20040526
  Receipt Date: 20040405
  Transmission Date: 20050107
  Serious: Yes (Hospitalization)
  Sender: FDA-Public Use
  Company Number: JP-MERCK-0404USA00987

PATIENT
  Age: 79 Year
  Sex: Female

DRUGS (11)
  1. [THERAPY UNSPECIFIED] [Concomitant]
     Route: 065
     Dates: start: 20040101
  2. ALLOPURINOL TAB [Suspect]
     Route: 048
     Dates: start: 20040101
  3. PERSANTIN INJ [Concomitant]
     Route: 048
     Dates: start: 20040101
  4. PEPCID [Suspect]
     Route: 048
     Dates: start: 20040101, end: 20040412
  5. FLUTICASONE PROPIONATE [Concomitant]
     Route: 055
     Dates: start: 20040101
  6. LASIX [Concomitant]
     Route: 048
     Dates: start: 20040101
  7. MAGNESIUM OXIDE [Concomitant]
     Route: 048
     Dates: start: 20040101
  8. RHYTHMY [Concomitant]
     Route: 048
     Dates: start: 20040101
  9. ALOSENN [Concomitant]
     Route: 048
     Dates: start: 20040101
  10. ALDACTONE [Concomitant]
     Route: 048
     Dates: start: 20040101
  11. THEOPHYLLINE [Suspect]
     Route: 048
     Dates: start: 20040101

REACTIONS (2)
  - ALOPECIA [None]
  - PULMONARY TUBERCULOSIS [None]
